FAERS Safety Report 23287736 (Version 2)
Quarter: 2023Q4

REPORT INFORMATION
  Report Type: Spontaneous
  Country: CA (occurrence: CA)
  Receive Date: 20231212
  Receipt Date: 20231213
  Transmission Date: 20240110
  Serious: Yes (Hospitalization, Other)
  Sender: FDA-Public Use
  Company Number: CA-CELLTRION INC.-2023CA020747

PATIENT

DRUGS (14)
  1. INFLECTRA [Suspect]
     Active Substance: INFLIXIMAB-DYYB
     Indication: Crohn^s disease
     Dosage: 400 MG Q 0,2,6 WEEKS, THEN EVERY 8 WEEKS
     Route: 042
     Dates: start: 20220126, end: 20220209
  2. INFLECTRA [Suspect]
     Active Substance: INFLIXIMAB-DYYB
     Dosage: 500 MG EVERY 8 WEEKS
     Route: 042
     Dates: start: 20220309, end: 20220505
  3. INFLECTRA [Suspect]
     Active Substance: INFLIXIMAB-DYYB
     Dosage: 500 MG EVERY 6 WEEKS, EQUIVALENT 5 MG/KG
     Route: 042
     Dates: start: 20220621, end: 20220802
  4. INFLECTRA [Suspect]
     Active Substance: INFLIXIMAB-DYYB
     Dosage: 900 MG EVERY 6 WEEKS
     Route: 042
     Dates: start: 20220913, end: 20221208
  5. INFLECTRA [Suspect]
     Active Substance: INFLIXIMAB-DYYB
     Dosage: 1000 MG EVERY 6 WEEKS
     Route: 042
     Dates: start: 20230117, end: 20230526
  6. INFLECTRA [Suspect]
     Active Substance: INFLIXIMAB-DYYB
     Dosage: 1000 MG, EVERY 1,5 THEN EVERY 4 WEEKS
     Route: 042
     Dates: start: 20230602
  7. INFLECTRA [Suspect]
     Active Substance: INFLIXIMAB-DYYB
     Dosage: 1000 MG, EVERY 1,5 THEN EVERY 4 WEEKS
     Route: 042
     Dates: start: 20230921
  8. INFLECTRA [Suspect]
     Active Substance: INFLIXIMAB-DYYB
     Dosage: 1000 MG 6 WEEKS AND 4 DAYS
     Route: 042
     Dates: start: 20231106
  9. INFLECTRA [Suspect]
     Active Substance: INFLIXIMAB-DYYB
     Dosage: 1000 MG
     Dates: start: 20231204
  10. AMOXICILLIN [Concomitant]
     Active Substance: AMOXICILLIN
     Dosage: UNK
  11. ASPIRIN [Concomitant]
     Active Substance: ASPIRIN
     Dosage: UNK
  12. ATORVASTATIN [Concomitant]
     Active Substance: ATORVASTATIN
     Dosage: UNK
  13. GABAPENTIN [Concomitant]
     Active Substance: GABAPENTIN
     Dosage: UNK
  14. VITAMIN B1 [Concomitant]
     Active Substance: THIAMINE HYDROCHLORIDE
     Dosage: UNK

REACTIONS (12)
  - Pancreatitis [Recovered/Resolved]
  - Influenza [Recovering/Resolving]
  - Nasopharyngitis [Recovered/Resolved]
  - Abdominal discomfort [Recovering/Resolving]
  - Tinnitus [Not Recovered/Not Resolved]
  - Constipation [Unknown]
  - Loss of personal independence in daily activities [Unknown]
  - Ear discomfort [Unknown]
  - Ear pain [Unknown]
  - Sinusitis [Unknown]
  - Dehydration [Unknown]
  - Inappropriate schedule of product administration [Unknown]

NARRATIVE: CASE EVENT DATE: 20230101
